FAERS Safety Report 5527166-4 (Version None)
Quarter: 2007Q4

REPORT INFORMATION
  Report Type: 
  Country: None (occurrence: None)
  Receive Date: 20071121
  Receipt Date: 20071113
  Transmission Date: 20080405
  Serious: Yes (Hospitalization)
  Sender: FDA-Public Use
  Company Number: US021736

PATIENT
  Age: 44 Year
  Sex: Male

DRUGS (1)
  1. PROVIGIL [Suspect]
     Dosage: ONCE ORAL
     Route: 048
     Dates: start: 20060906, end: 20060906

REACTIONS (3)
  - COMA [None]
  - INTENTIONAL DRUG MISUSE [None]
  - SUICIDE ATTEMPT [None]
